FAERS Safety Report 21037983 (Version 1)
Quarter: 2022Q3

REPORT INFORMATION
  Report Type: Spontaneous
  Country: GB (occurrence: GB)
  Receive Date: 20220704
  Receipt Date: 20220704
  Transmission Date: 20221026
  Serious: Yes (Death, Other)
  Sender: FDA-Public Use
  Company Number: GB-CELLTRION INC.-2022GB010339

PATIENT

DRUGS (1)
  1. INFLIXIMAB [Suspect]
     Active Substance: INFLIXIMAB
     Indication: Crohn^s disease
     Dosage: REMSIMA (INFLIXIMAB) 120MG PRE-FILLED PEN
     Route: 058
     Dates: start: 202101, end: 202206

REACTIONS (1)
  - Death [Fatal]

NARRATIVE: CASE EVENT DATE: 20220617
